FAERS Safety Report 6049034-4 (Version None)
Quarter: 2009Q1

REPORT INFORMATION
  Report Type: 
  Country: None (occurrence: None)
  Receive Date: 20090123
  Receipt Date: 20090119
  Transmission Date: 20090719
  Serious: Yes (Hospitalization)
  Sender: FDA-Public Use
  Company Number: US-AMGEN-KDL328635

PATIENT
  Sex: Male
  Weight: 62.8 kg

DRUGS (16)
  1. PROCRIT [Suspect]
     Indication: RENAL FAILURE CHRONIC
     Route: 058
     Dates: start: 20090102
  2. LASIX [Concomitant]
     Route: 048
     Dates: start: 20081227
  3. ADVAIR DISKUS 100/50 [Concomitant]
     Route: 045
     Dates: start: 20080101
  4. DUONEB [Concomitant]
     Dates: start: 20081222
  5. ARICEPT [Concomitant]
     Route: 048
     Dates: start: 20081222
  6. ASPIRIN [Concomitant]
     Route: 048
     Dates: start: 20081222
  7. METOPROLOL TARTRATE [Concomitant]
     Route: 048
     Dates: start: 20081222
  8. NORVASC [Concomitant]
     Route: 048
     Dates: start: 20081222
  9. PROTONIX [Concomitant]
     Route: 048
     Dates: start: 20081222
  10. MILK OF MAGNESIA [Concomitant]
     Route: 048
     Dates: start: 20081222
  11. DULCOLAX [Concomitant]
     Route: 054
     Dates: start: 20081222
  12. ENEMA [Concomitant]
     Route: 054
     Dates: start: 20081222
  13. MAALOX [Concomitant]
     Route: 048
     Dates: start: 20081222
  14. TYLENOL (CAPLET) [Concomitant]
     Route: 048
     Dates: start: 20081222
  15. COLACE [Concomitant]
     Route: 048
     Dates: start: 20081222
  16. FERROUS SULFATE TAB [Concomitant]
     Route: 048
     Dates: start: 20081229

REACTIONS (1)
  - CHRONIC OBSTRUCTIVE PULMONARY DISEASE [None]
